FAERS Safety Report 17531916 (Version 1)
Quarter: 2020Q1

REPORT INFORMATION
  Report Type: Spontaneous
  Country: US (occurrence: US)
  Receive Date: 20200304
  Receipt Date: 20200304
  Transmission Date: 20200409
  Serious: Yes (Hospitalization)
  Sender: FDA-Public Use
  Company Number: None

PATIENT
  Age: 68 Year
  Sex: Female
  Weight: 61.9 kg

DRUGS (1)
  1. ASPIRIN. [Suspect]
     Active Substance: ASPIRIN
     Dates: start: 20180808, end: 20190227

REACTIONS (4)
  - Wound [None]
  - Swelling [None]
  - Erythema [None]
  - Pain [None]

NARRATIVE: CASE EVENT DATE: 20200227
